FAERS Safety Report 7075098-5 (Version None)
Quarter: 2010Q4

REPORT INFORMATION
  Report Type: 
  Country: None (occurrence: None)
  Receive Date: 20101029
  Receipt Date: 20100716
  Transmission Date: 20110411
  Serious: Yes (Hospitalization)
  Sender: FDA-Public Use
  Company Number: US-WYE-H14679810

PATIENT
  Sex: Female
  Weight: 59.02 kg

DRUGS (16)
  1. TYGACIL [Suspect]
     Indication: DIVERTICULITIS
     Dosage: 50MG INITIAL THEN 50MG EVERY 12 HOURS
     Route: 042
     Dates: start: 20100109, end: 20100111
  2. TYGACIL [Suspect]
     Indication: INFECTION
  3. NORCO [Concomitant]
     Indication: PAIN
     Dosage: 5/525 MG EVERY 6 HOURS
     Route: 048
     Dates: start: 20100109, end: 20100114
  4. ZOFRAN [Concomitant]
     Indication: NAUSEA
     Dosage: 4MG EVERY 6 HOURS AS NEEDED
     Route: 042
     Dates: start: 20100109, end: 20100112
  5. ZOFRAN [Concomitant]
     Indication: VOMITING
  6. METRONIDAZOLE [Concomitant]
     Route: 042
     Dates: start: 20100109, end: 20100111
  7. NAPROXEN [Concomitant]
     Route: 048
     Dates: start: 20100109, end: 20100113
  8. SERTRALINE HYDROCHLORIDE [Concomitant]
     Route: 048
     Dates: start: 20100110, end: 20100113
  9. ZOLPIDEM [Concomitant]
     Route: 048
     Dates: start: 20100109, end: 20100113
  10. OMEPRAZOLE [Concomitant]
     Route: 048
     Dates: start: 20100110, end: 20100113
  11. ASPIRIN [Concomitant]
     Dosage: 81 MG EVERY 24 DEC
     Dates: start: 20100110, end: 20100113
  12. CLOPIDOGREL [Concomitant]
     Route: 048
     Dates: start: 20100110, end: 20100113
  13. EZETIMIBE [Concomitant]
     Route: 048
     Dates: start: 20100110, end: 20100113
  14. REGLAN [Concomitant]
     Indication: NAUSEA
     Dosage: 10 MG EVERY 6 HOURS AS NEEDED
     Route: 042
     Dates: start: 20100109, end: 20100111
  15. REGLAN [Concomitant]
     Indication: VOMITING
  16. PSYLLIUM [Concomitant]
     Route: 048
     Dates: start: 20100109, end: 20100113

REACTIONS (1)
  - HYPOGLYCAEMIA [None]
